FAERS Safety Report 24685875 (Version 3)
Quarter: 2025Q3

REPORT INFORMATION
  Report Type: Spontaneous
  Country: US (occurrence: US)
  Receive Date: 20241202
  Receipt Date: 20250822
  Transmission Date: 20251021
  Serious: Yes (Other)
  Sender: SANDOZ
  Company Number: US-SANDOZ-SDZ2024US097474

PATIENT
  Age: 54 Year
  Sex: Female
  Weight: 49.9 kg

DRUGS (18)
  1. AZITHROMYCIN [Suspect]
     Active Substance: AZITHROMYCIN
     Indication: Mycobacterium abscessus infection
     Route: 065
     Dates: start: 20240922, end: 20240922
  2. AZITHROMYCIN [Suspect]
     Active Substance: AZITHROMYCIN
     Indication: Mycobacterium avium complex infection
     Route: 065
  3. CLOFAZIMINE [Suspect]
     Active Substance: CLOFAZIMINE
     Indication: Mycobacterium avium complex infection
     Dosage: 50 MG, QD
     Route: 048
     Dates: start: 20240604, end: 20241027
  4. CLOFAZIMINE [Suspect]
     Active Substance: CLOFAZIMINE
     Indication: Mycobacterium abscessus infection
     Dosage: 100 MG
     Route: 048
     Dates: end: 20240603
  5. CLOFAZIMINE [Suspect]
     Active Substance: CLOFAZIMINE
     Indication: Atypical mycobacterial infection
  6. OMADACYCLINE [Suspect]
     Active Substance: OMADACYCLINE
     Indication: Mycobacterium avium complex infection
     Route: 065
  7. OMADACYCLINE [Suspect]
     Active Substance: OMADACYCLINE
     Indication: Mycobacterium abscessus infection
     Dosage: 300 MG
     Route: 065
     Dates: start: 20231025
  8. OMADACYCLINE [Suspect]
     Active Substance: OMADACYCLINE
     Dosage: 300 MG
     Route: 065
     Dates: start: 20241027
  9. AMIKACIN [Concomitant]
     Active Substance: AMIKACIN
     Indication: Product used for unknown indication
     Route: 042
     Dates: start: 20240901, end: 20240904
  10. AZITHROMYCIN [Concomitant]
     Active Substance: AZITHROMYCIN
     Indication: Mycobacterium avium complex infection
     Dosage: 500 MG, QD
     Route: 065
  11. AZITHROMYCIN [Concomitant]
     Active Substance: AZITHROMYCIN
     Indication: Mycobacterium abscessus infection
  12. Etb [Concomitant]
     Indication: Mycobacterium avium complex infection
     Dosage: 800 MG, QD
     Route: 048
  13. Etb [Concomitant]
     Indication: Mycobacterium abscessus infection
  14. ETHAMBUTOL [Concomitant]
     Active Substance: ETHAMBUTOL HYDROCHLORIDE
     Indication: Mycobacterium abscessus infection
     Route: 065
     Dates: start: 20240922
  15. ETHAMBUTOL [Concomitant]
     Active Substance: ETHAMBUTOL HYDROCHLORIDE
     Indication: Mycobacterium avium complex infection
     Route: 065
     Dates: start: 20240506
  16. Nasal [Concomitant]
     Indication: Product used for unknown indication
     Dosage: 4 ML, Q12H VIA NEBULIZER
     Route: 065
  17. RIFAMPIN [Concomitant]
     Active Substance: RIFAMPIN
     Indication: Mycobacterium abscessus infection
     Dosage: 450 MG, QD
     Route: 065
     Dates: start: 20240922
  18. RIFAMPIN [Concomitant]
     Active Substance: RIFAMPIN
     Indication: Mycobacterium avium complex infection
     Dosage: 450 MG, QD, (DOSE ADJUSTED FOR WEIGHT LESS THAN 50 KG)
     Route: 065
     Dates: start: 20240506

REACTIONS (10)
  - Nephrolithiasis [Unknown]
  - Abdominal pain upper [Recovering/Resolving]
  - Gallbladder disorder [Unknown]
  - Skin discolouration [Not Recovered/Not Resolved]
  - Alanine aminotransferase increased [Recovered/Resolved]
  - Aspartate aminotransferase increased [Recovered/Resolved]
  - Tinnitus [Not Recovered/Not Resolved]
  - White blood cell count decreased [Unknown]
  - Nausea [Recovering/Resolving]
  - Diarrhoea [Recovering/Resolving]

NARRATIVE: CASE EVENT DATE: 20240503
